FAERS Safety Report 19006477 (Version 1)
Quarter: 2021Q1

REPORT INFORMATION
  Report Type: Spontaneous
  Country: US (occurrence: US)
  Receive Date: 20210311
  Receipt Date: 20210311
  Transmission Date: 20210420
  Serious: Yes (Hospitalization)
  Sender: FDA-Public Use
  Company Number: None

PATIENT
  Age: 32 Year
  Sex: Female

DRUGS (1)
  1. AMBRISENTAN 5MG TABLETS 30/BO: 5MG [Suspect]
     Active Substance: AMBRISENTAN
     Indication: PULMONARY ARTERIAL HYPERTENSION
     Route: 048
     Dates: start: 20210218

REACTIONS (6)
  - Pyrexia [None]
  - Oedema peripheral [None]
  - Lung infiltration [None]
  - Respiratory failure [None]
  - Tachycardia [None]
  - Fibrin D dimer increased [None]

NARRATIVE: CASE EVENT DATE: 20210228
